FAERS Safety Report 16617211 (Version 1)
Quarter: 2019Q3

REPORT INFORMATION
  Report Type: Spontaneous
  Country: NL (occurrence: NL)
  Receive Date: 20190723
  Receipt Date: 20190723
  Transmission Date: 20191004
  Serious: Yes (Life-Threatening, Hospitalization)
  Sender: FDA-Public Use
  Company Number: NL-MYLANLABS-2019M1068162

PATIENT
  Age: 40 Year
  Sex: Male

DRUGS (7)
  1. LISINOPRIL/HYDROCHLOORTHIAZIDE [Concomitant]
     Active Substance: HYDROCHLOROTHIAZIDE\LISINOPRIL
     Dosage: UNK
  2. BIPERIDEN [Concomitant]
     Active Substance: BIPERIDEN
     Dosage: 2 MILLIGRAM, BID, 2D1T
  3. LISINOPRIL. [Suspect]
     Active Substance: LISINOPRIL
     Indication: ESSENTIAL HYPERTENSION
     Dosage: 20 MILLIGRAM, QD, 1X PER DAG 1
     Route: 048
     Dates: start: 20131231, end: 20190130
  4. CARBASALATE CALCIUM [Concomitant]
     Active Substance: CARBASPIRIN
     Dosage: 3D1P
     Dates: start: 20190128
  5. DOXAZOSINE                         /00639301/ [Concomitant]
     Active Substance: DOXAZOSIN MESYLATE
     Dosage: 8 MILLIGRAM, QD, 1D2RC
  6. ZUCLOPENTIXOL [Concomitant]
     Active Substance: ZUCLOPENTHIXOL
  7. NIFEDIPINE. [Concomitant]
     Active Substance: NIFEDIPINE
     Dosage: 1D1T

REACTIONS (1)
  - Palatal swelling [Recovered/Resolved]

NARRATIVE: CASE EVENT DATE: 20190128
